FAERS Safety Report 25144910 (Version 1)
Quarter: 2025Q1

REPORT INFORMATION
  Report Type: Spontaneous
  Country: US (occurrence: None)
  Receive Date: 20250331
  Receipt Date: 20250331
  Transmission Date: 20250409
  Serious: No
  Sender: FDA-CTU
  Company Number: None

PATIENT
  Age: 70 Year
  Sex: Female

DRUGS (6)
  1. DALFAMPRIDINE [Suspect]
     Active Substance: DALFAMPRIDINE
     Indication: Multiple sclerosis
     Dosage: OTHER QUANTITY : 10;?FREQUENCY : TWICE A DAY;?
     Route: 048
     Dates: start: 20240521
  2. B-COMPLEX + C CAPLETS [Concomitant]
  3. MAGNESIUM [Suspect]
     Active Substance: MAGNESIUM
  4. VITAMIN D [Concomitant]
     Active Substance: VITAMIN D NOS
  5. AMANTADINE [Concomitant]
     Active Substance: AMANTADINE
  6. TERBINAFINE [Concomitant]
     Active Substance: TERBINAFINE

REACTIONS (4)
  - Incontinence [None]
  - Dizziness [None]
  - Alopecia [None]
  - Pain in jaw [None]
